FAERS Safety Report 4828610-8 (Version None)
Quarter: 2005Q4

REPORT INFORMATION
  Report Type: 
  Country: None (occurrence: None)
  Receive Date: 20051014
  Receipt Date: 20050629
  Transmission Date: 20060501
  Serious: No
  Sender: FDA-Public Use
  Company Number: 2005SP001663

PATIENT
  Age: 82 Year
  Sex: Male
  Weight: 73.4827 kg

DRUGS (3)
  1. LUNESTA [Suspect]
     Indication: INSOMNIA
     Dosage: 1 MG;ORAL ; 2 MG;ORAL
     Route: 048
     Dates: start: 20050601, end: 20050701
  2. LUNESTA [Suspect]
     Indication: INSOMNIA
     Dosage: 1 MG;ORAL ; 2 MG;ORAL
     Route: 048
     Dates: start: 20050701
  3. AMBIEN [Concomitant]

REACTIONS (3)
  - DRUG INEFFECTIVE [None]
  - DRY MOUTH [None]
  - MIDDLE INSOMNIA [None]
